FAERS Safety Report 20387882 (Version 2)
Quarter: 2022Q2

REPORT INFORMATION
  Report Type: Spontaneous
  Country: US (occurrence: US)
  Receive Date: 20220128
  Receipt Date: 20220428
  Transmission Date: 20220721
  Serious: No
  Sender: FDA-Public Use
  Company Number: US-ENDO PHARMACEUTICALS INC-2021-012270

PATIENT
  Sex: Female
  Weight: 52.154 kg

DRUGS (4)
  1. QWO [Suspect]
     Active Substance: COLLAGENASE CLOSTRIDIUM HISTOLYTICUM-AAES
     Indication: Cellulite
     Dosage: UNK UNKNOWN, (TREATMENT ONE)
     Route: 058
     Dates: start: 20210713
  2. QWO [Suspect]
     Active Substance: COLLAGENASE CLOSTRIDIUM HISTOLYTICUM-AAES
     Dosage: UNK UNKNOWN, (TREATMENT TWO)
     Route: 058
     Dates: start: 202108
  3. QWO [Suspect]
     Active Substance: COLLAGENASE CLOSTRIDIUM HISTOLYTICUM-AAES
     Dosage: UNK UNKNOWN, (TREATMENT THREE)
     Route: 058
     Dates: start: 202108, end: 20210826
  4. MULTIVITAMINS                      /00116001/ [Concomitant]
     Indication: Product used for unknown indication
     Dosage: UNK UNKNOWN, DAILY
     Route: 065

REACTIONS (3)
  - Skin indentation [Not Recovered/Not Resolved]
  - Condition aggravated [Not Recovered/Not Resolved]
  - Lipodystrophy acquired [Unknown]

NARRATIVE: CASE EVENT DATE: 20210101
